FAERS Safety Report 9016291 (Version 4)
Quarter: 2013Q2

REPORT INFORMATION
  Report Type: Spontaneous
  Country: US (occurrence: US)
  Receive Date: 20130116
  Receipt Date: 20130514
  Transmission Date: 20140414
  Serious: Yes (Hospitalization)
  Sender: FDA-Public Use
  Company Number: US-B.I. PHARMACEUTICALS,INC./RIDGEFIELD-2013-BI-00729BP

PATIENT
  Age: 64 Year
  Sex: Male
  Weight: 96.16 kg

DRUGS (19)
  1. PRADAXA [Suspect]
     Indication: ATRIAL FIBRILLATION
     Dosage: 300 MG
     Dates: start: 20110323, end: 20110327
  2. FLAXSEED OIL [Concomitant]
     Dosage: 1000 MG
     Route: 048
  3. JANUVIA [Concomitant]
     Dosage: 50 MG
  4. SIMVASTATIN [Concomitant]
     Dosage: 20 MG
  5. HYDRALAZINE [Concomitant]
     Dosage: 100 MG
     Route: 048
  6. BUMEX [Concomitant]
     Dosage: 0.5 MG
     Route: 048
  7. SPIRIVA [Concomitant]
     Dosage: 18 MCG
  8. B12 [Concomitant]
     Dosage: 1000 MG
  9. B6 [Concomitant]
     Dosage: 50 MG
  10. FLOMAX [Concomitant]
     Dosage: 0.4 MG
     Route: 048
  11. BIOTIN [Concomitant]
     Dosage: 1000 MCG
     Route: 048
  12. AMIODARONE [Concomitant]
     Dosage: 800 MG
     Route: 048
  13. LISINOPRIL [Concomitant]
     Dosage: 40 MG
  14. SPIRONOLACTONE [Concomitant]
     Dosage: 12.5 MG
     Route: 048
  15. CARVEDILOL [Concomitant]
     Dosage: 12.5 MG
  16. ZESTRIL [Concomitant]
     Dosage: 40 MG
     Route: 048
  17. COREG [Concomitant]
     Dosage: 25 MG
     Route: 048
  18. ZOCOR [Concomitant]
     Dosage: 20 MG
     Route: 048
  19. NITROGLYCERIN [Concomitant]
     Route: 048

REACTIONS (2)
  - Gastritis haemorrhagic [Unknown]
  - Rash [Not Recovered/Not Resolved]
